FAERS Safety Report 8909634 (Version 1)
Quarter: 2012Q4

REPORT INFORMATION
  Report Type: 
  Country: US (occurrence: US)
  Receive Date: 20121115
  Receipt Date: 20121115
  Transmission Date: 20130627
  Serious: Yes (Other)
  Sender: FDA-Public Use
  Company Number: US-JNJFOC-20121104891

PATIENT
  Age: 40 Year
  Sex: Male

DRUGS (2)
  1. NICOTINE POLACRILEX GUM 2 MG [Suspect]
     Indication: SMOKING CESSATION THERAPY
     Route: 048
  2. NICOTINE POLACRILEX GUM [Suspect]
     Indication: SMOKING CESSATION THERAPY
     Route: 048

REACTIONS (3)
  - Nicotine dependence [Not Recovered/Not Resolved]
  - Intentional drug misuse [Unknown]
  - Drug administration error [Unknown]
